FAERS Safety Report 8354641-X (Version None)
Quarter: 2012Q2

REPORT INFORMATION
  Report Type: 
  Country: None (occurrence: None)
  Receive Date: 20120511
  Receipt Date: 20120503
  Transmission Date: 20120825
  Serious: Yes (Hospitalization, Other)
  Sender: FDA-Public Use
  Company Number: US-MERCK-1202USA02454

PATIENT
  Age: 64 Year
  Sex: Female

DRUGS (7)
  1. FOSAMAX [Suspect]
     Indication: OSTEOPOROSIS
     Route: 048
     Dates: end: 20070101
  2. PREMARIN [Concomitant]
     Route: 048
  3. IMIPRAMINE HYDROCHLORIDE [Concomitant]
     Route: 048
  4. ZYRTEC [Concomitant]
     Route: 048
  5. CALCIUM ACETATE [Concomitant]
     Route: 048
  6. VITAMINS (UNSPECIFIED) [Concomitant]
     Route: 048
  7. LOVENOX [Concomitant]
     Indication: THROMBOSIS PROPHYLAXIS
     Dosage: FOR 20 DAYS
     Route: 058

REACTIONS (13)
  - HAEMATOMA [None]
  - OSTEOARTHRITIS [None]
  - FEMUR FRACTURE [None]
  - UTERINE DISORDER [None]
  - FRACTURE NONUNION [None]
  - HYPERLIPIDAEMIA [None]
  - CHOLELITHIASIS [None]
  - CHRONIC SINUSITIS [None]
  - ANAEMIA [None]
  - LOW TURNOVER OSTEOPATHY [None]
  - DEVICE FAILURE [None]
  - ANXIETY [None]
  - DEPRESSION [None]
